FAERS Safety Report 9176686 (Version 1)
Quarter: 2013Q1

REPORT INFORMATION
  Report Type: Spontaneous
  Country: US (occurrence: US)
  Receive Date: 20130321
  Receipt Date: 20130321
  Transmission Date: 20140127
  Serious: Yes (Hospitalization)
  Sender: FDA-Public Use
  Company Number: US-MYLANLABS-2012S1023727

PATIENT
  Age: 43 Year
  Sex: Male

DRUGS (1)
  1. SERTRALINE [Suspect]

REACTIONS (1)
  - Serotonin syndrome [Recovered/Resolved]
